FAERS Safety Report 19984101 (Version 7)
Quarter: 2025Q3

REPORT INFORMATION
  Report Type: Report from Study
  Country: US (occurrence: US)
  Receive Date: 20211022
  Receipt Date: 20250710
  Transmission Date: 20251021
  Serious: Yes (Disabling)
  Sender: NOVARTIS
  Company Number: US-NOVARTISTESTPH-NVSC2021US241627

PATIENT
  Sex: Female

DRUGS (2)
  1. ENTRESTO [Suspect]
     Active Substance: SACUBITRIL\VALSARTAN
     Indication: Product used for unknown indication
     Route: 065
  2. TYLENOL [Concomitant]
     Active Substance: ACETAMINOPHEN
     Indication: Peripheral swelling
     Route: 065

REACTIONS (9)
  - Gout [Unknown]
  - Arthralgia [Unknown]
  - Peripheral swelling [Unknown]
  - Productive cough [Unknown]
  - Flatulence [Unknown]
  - Muscle spasms [Unknown]
  - Feeling abnormal [Unknown]
  - Gait disturbance [Unknown]
  - Fatigue [Unknown]
